FAERS Safety Report 8836576 (Version 1)
Quarter: 2012Q4

REPORT INFORMATION
  Report Type: Spontaneous
  Country: US (occurrence: None)
  Receive Date: 20121009
  Receipt Date: 20121009
  Transmission Date: 20130627
  Serious: Yes (Other)
  Sender: FDA-Public Use
  Company Number: VAL_00898_2012

PATIENT
  Sex: Female

DRUGS (7)
  1. METOPROLOL [Suspect]
     Indication: PRODUCT USED FOR UNKNOWN INDICATION
     Dates: start: 2010
  2. RECLAST [Suspect]
     Indication: PRODUCT USED FOR UNKNOWN INDICATION
     Dosage: (5 mg 1x/year Intravenous (not otherwise specified))
     Route: 042
     Dates: start: 2009
  3. RECLAST [Suspect]
     Indication: PRODUCT USED FOR UNKNOWN INDICATION
     Dosage: (5 mg 1x/year Intravenous (not otherwise specified))
     Route: 042
     Dates: start: 2010
  4. RECLAST [Suspect]
     Indication: PRODUCT USED FOR UNKNOWN INDICATION
     Dosage: (5 mg 1x/year Intravenous (not otherwise specified))
     Route: 042
     Dates: start: 201107
  5. ANASTROZOLE [Concomitant]
  6. ASPIRIN (25 YEARS UNTIL UNKNOWN) [Concomitant]
  7. ARMOUR THYROID (25 YEARS UNTIL UNKNOWN) [Concomitant]

REACTIONS (1)
  - Hernia repair [None]
